FAERS Safety Report 7915707-9 (Version None)
Quarter: 2011Q4

REPORT INFORMATION
  Report Type: 
  Country: None (occurrence: None)
  Receive Date: 20111115
  Receipt Date: 20111108
  Transmission Date: 20120403
  Serious: Yes (Other)
  Sender: FDA-Public Use
  Company Number: JP-GLAXOSMITHKLINE-B0748748A

PATIENT
  Sex: Female

DRUGS (9)
  1. DICLOFENAC SODIUM [Concomitant]
     Route: 048
  2. DEPAS [Concomitant]
     Route: 048
  3. PAXIL [Suspect]
     Dosage: 20MG PER DAY
     Route: 048
  4. SILECE [Concomitant]
     Dosage: 2MG PER DAY
     Route: 048
  5. LORAZEPAM [Concomitant]
     Dosage: .5MG PER DAY
     Route: 048
  6. DEPAKENE [Concomitant]
     Dosage: 400MG PER DAY
     Route: 048
  7. PAXIL [Suspect]
     Indication: PRODUCT USED FOR UNKNOWN INDICATION
     Route: 048
     Dates: start: 20090801
  8. AMERGE [Suspect]
     Indication: PRODUCT USED FOR UNKNOWN INDICATION
     Route: 048
  9. MEILAX [Concomitant]
     Dosage: 2MG PER DAY
     Route: 048

REACTIONS (3)
  - CATARACT [None]
  - PHOTOPHOBIA [None]
  - EYE PAIN [None]
